FAERS Safety Report 17711646 (Version 1)
Quarter: 2020Q2

REPORT INFORMATION
  Report Type: Spontaneous
  Country: FR (occurrence: FR)
  Receive Date: 20200427
  Receipt Date: 20200427
  Transmission Date: 20200714
  Serious: Yes (Other)
  Sender: FDA-Public Use
  Company Number: FR-PFIZER INC-2020165016

PATIENT

DRUGS (8)
  1. NILOTINIB [Suspect]
     Active Substance: NILOTINIB
     Dosage: CONSOLIDATION 3
     Dates: start: 20200302
  2. CYTARABINE. [Concomitant]
     Active Substance: CYTARABINE
     Dosage: CONSOLIDATION 4
     Dates: start: 2020
  3. METHOTREXATE SODIUM. [Suspect]
     Active Substance: METHOTREXATE SODIUM
     Indication: ACUTE LYMPHOCYTIC LEUKAEMIA
     Dosage: CONSOLIDATION 1
     Route: 065
     Dates: start: 20190512
  4. METHOTREXATE SODIUM. [Suspect]
     Active Substance: METHOTREXATE SODIUM
     Dosage: CONSOLIDATION
     Dates: start: 20200302
  5. KIDROLASE [Suspect]
     Active Substance: ASPARAGINASE
     Indication: ACUTE LYMPHOCYTIC LEUKAEMIA
     Dosage: CONSOLIDATION 1
     Route: 065
     Dates: start: 20190512
  6. CYTARABINE. [Concomitant]
     Active Substance: CYTARABINE
     Dosage: CONSOLIDATION 2
     Dates: start: 20200201
  7. KIDROLASE [Suspect]
     Active Substance: ASPARAGINASE
     Dosage: CONSOLIDATION 3
     Dates: start: 20200302, end: 202003
  8. NILOTINIB [Suspect]
     Active Substance: NILOTINIB
     Indication: ACUTE LYMPHOCYTIC LEUKAEMIA
     Dosage: CONSOLIDATION 1
     Route: 065
     Dates: start: 20190512

REACTIONS (1)
  - Drug hypersensitivity [Unknown]

NARRATIVE: CASE EVENT DATE: 202003
